FAERS Safety Report 17156029 (Version 6)
Quarter: 2021Q2

REPORT INFORMATION
  Report Type: Report from Study
  Country: JP (occurrence: JP)
  Receive Date: 20191216
  Receipt Date: 20210408
  Transmission Date: 20210716
  Serious: Yes (Hospitalization, Other)
  Sender: FDA-Public Use
  Company Number: JP-ALEXION PHARMACEUTICALS INC.-A201918805

PATIENT
  Age: 12 Year
  Sex: Female
  Weight: 19.8 kg

DRUGS (3)
  1. STRENSIQ [Suspect]
     Active Substance: ASFOTASE ALFA
     Indication: HYPOPHOSPHATASIA
     Dosage: 2 MG/KG, TIW
     Route: 058
     Dates: start: 20191009, end: 20191201
  2. STRENSIQ [Suspect]
     Active Substance: ASFOTASE ALFA
     Dosage: 2 MG/KG, TIW
     Route: 058
     Dates: start: 20191227
  3. NORDITROPIN [Concomitant]
     Active Substance: SOMATROPIN
     Indication: HYPOPHOSPHATASIA
     Dosage: 0.8 MG, QD
     Route: 058
     Dates: end: 20191126

REACTIONS (4)
  - Product dose omission issue [Unknown]
  - Encephalopathy [Recovered/Resolved with Sequelae]
  - Shock [Recovered/Resolved]
  - Cerebral palsy [Recovered/Resolved with Sequelae]

NARRATIVE: CASE EVENT DATE: 20191124
